FAERS Safety Report 7736707-8 (Version None)
Quarter: 2011Q3

REPORT INFORMATION
  Report Type: 
  Country: None (occurrence: None)
  Receive Date: 20110908
  Receipt Date: 20110905
  Transmission Date: 20111222
  Serious: Yes (Hospitalization)
  Sender: FDA-Public Use
  Company Number: HR-ROXANE LABORATORIES, INC.-2011-RO-01211RO

PATIENT
  Age: 67 Year
  Sex: Female

DRUGS (7)
  1. FUROSEMIDE [Suspect]
  2. CITALOPRAM HYDROBROMIDE [Suspect]
     Indication: DEPRESSION
     Dosage: 20 MG
  3. POTASSIUM [Suspect]
  4. HYDROCHLOROTHIAZIDE [Suspect]
  5. LOSARTAN POTASSIUM [Suspect]
  6. BISOPROLOL FUMARATE [Suspect]
  7. PROPAFENONE HCL [Suspect]

REACTIONS (1)
  - PARKINSONISM [None]
